FAERS Safety Report 5201834-6 (Version None)
Quarter: 2007Q1

REPORT INFORMATION
  Report Type: 
  Country: None (occurrence: None)
  Receive Date: 20070104
  Receipt Date: 20061222
  Transmission Date: 20070707
  Serious: Yes (Other)
  Sender: FDA-Public Use
  Company Number: 2006114066

PATIENT
  Age: 67 Year
  Sex: Female

DRUGS (1)
  1. REGAINE 2% (MINOXIDIL) [Suspect]
     Indication: ALOPECIA
     Dosage: 3 X 60 ML/MONTH, TOPICAL
     Route: 061
     Dates: start: 20060501, end: 20060921

REACTIONS (1)
  - INTRAOCULAR PRESSURE INCREASED [None]
